APPROVED DRUG PRODUCT: METOPROLOL TARTRATE
Active Ingredient: METOPROLOL TARTRATE
Strength: 25MG
Dosage Form/Route: TABLET;ORAL
Application: A073654 | Product #002
Applicant: SUN PHARMACEUTICAL INDUSTRIES INC
Approved: Jul 15, 2009 | RLD: No | RS: No | Type: DISCN